FAERS Safety Report 23672550 (Version 1)
Quarter: 2024Q1

REPORT INFORMATION
  Report Type: Spontaneous
  Country: CN (occurrence: CN)
  Receive Date: 20240326
  Receipt Date: 20240326
  Transmission Date: 20240409
  Serious: Yes (Death, Life-Threatening, Hospitalization, Other)
  Sender: FDA-Public Use
  Company Number: CN-MLMSERVICE-20240314-4889440-1

PATIENT
  Age: 52 Year
  Sex: Male

DRUGS (2)
  1. METHYLPREDNISOLONE [Suspect]
     Active Substance: METHYLPREDNISOLONE
     Indication: Demyelination
     Dosage: 1000 MG, 1X/DAY
  2. ACYCLOVIR [Concomitant]
     Active Substance: ACYCLOVIR
     Indication: Evidence based treatment
     Dosage: 1.5 G, 1X/DAY

REACTIONS (4)
  - Coma [Fatal]
  - Encephalitis protozoal [Fatal]
  - Condition aggravated [Fatal]
  - Off label use [Unknown]
